FAERS Safety Report 11518074 (Version 1)
Quarter: 2015Q3

REPORT INFORMATION
  Report Type: Spontaneous
  Country: US (occurrence: US)
  Receive Date: 20150917
  Receipt Date: 20150917
  Transmission Date: 20151125
  Serious: No
  Sender: FDA-Public Use
  Company Number: US-GALDERMA-US15005474

PATIENT
  Age: 43 Year
  Sex: Female

DRUGS (3)
  1. ZYRTEC [Concomitant]
     Active Substance: CETIRIZINE HYDROCHLORIDE
     Route: 048
  2. BASIS SENSITIVE SOAP [Concomitant]
     Route: 061
  3. MIRVASO [Suspect]
     Active Substance: BRIMONIDINE TARTRATE
     Indication: ROSACEA
     Dosage: 0.33%
     Route: 061
     Dates: start: 20150611

REACTIONS (3)
  - Flushing [Recovered/Resolved]
  - Erythema [Recovered/Resolved]
  - Skin burning sensation [Unknown]

NARRATIVE: CASE EVENT DATE: 20150622
